FAERS Safety Report 7340318-6 (Version None)
Quarter: 2011Q1

REPORT INFORMATION
  Report Type: 
  Country: None (occurrence: None)
  Receive Date: 20110309
  Receipt Date: 20080930
  Transmission Date: 20110831
  Serious: No
  Sender: FDA-Public Use
  Company Number: 2008BI025899

PATIENT
  Sex: Female

DRUGS (1)
  1. TYSABRI [Suspect]
     Indication: MULTIPLE SCLEROSIS
     Route: 042
     Dates: start: 20080728

REACTIONS (14)
  - MUSCULOSKELETAL DISORDER [None]
  - HYPOAESTHESIA [None]
  - HYPERHIDROSIS [None]
  - COLD SWEAT [None]
  - HOT FLUSH [None]
  - DIZZINESS [None]
  - BLOOD PRESSURE DECREASED [None]
  - LOSS OF CONSCIOUSNESS [None]
  - HEADACHE [None]
  - VOMITING [None]
  - NAUSEA [None]
  - ASTHENIA [None]
  - GENERAL SYMPTOM [None]
  - APHASIA [None]
